FAERS Safety Report 5083156-X (Version None)
Quarter: 2006Q3

REPORT INFORMATION
  Report Type: 
  Country: None (occurrence: None)
  Receive Date: 20060724
  Receipt Date: 20031121
  Transmission Date: 20061208
  Serious: Yes (Hospitalization)
  Sender: FDA-Public Use
  Company Number: DRON00206001440

PATIENT
  Age: 48 Year
  Sex: Female
  Weight: 73 kg

DRUGS (15)
  1. MARINOL [Suspect]
     Indication: MULTIPLE SCLEROSIS
     Dates: start: 20010806, end: 20020804
  2. MARINOL [Suspect]
     Indication: MUSCLE SPASTICITY
     Dates: start: 20010806, end: 20020804
  3. AZATHIOPRINE [Concomitant]
  4. BACLOFEN [Concomitant]
  5. CEPHALEXIN [Concomitant]
  6. DIAZEPAM [Concomitant]
  7. METHYLPREDNISOLONE [Concomitant]
  8. NITROFURANTOIN [Concomitant]
  9. ACETAMINOPHEN [Concomitant]
  10. SENNA (SENNA) [Concomitant]
  11. TEMAZEPAM [Concomitant]
  12. TRIMETHOPRIM [Concomitant]
  13. VITAMIN B12 [Concomitant]
  14. DICYNENE (ETAMSILATE) [Concomitant]
  15. DOCUSATE (DOCUSATE) [Concomitant]

REACTIONS (1)
  - MULTIPLE SCLEROSIS RELAPSE [None]
